FAERS Safety Report 4327522-6 (Version None)
Quarter: 2004Q1

REPORT INFORMATION
  Report Type: 
  Country: None (occurrence: None)
  Receive Date: 20040325
  Receipt Date: 20040311
  Transmission Date: 20041129
  Serious: Yes (Hospitalization)
  Sender: FDA-Public Use
  Company Number: 2004-FF-00184FF

PATIENT
  Age: 56 Year
  Sex: Male

DRUGS (6)
  1. VIRAMUNE [Suspect]
     Indication: HIV INFECTION
     Dosage: 400 MG (200 MG, 1 IN 12 HR)
     Route: 048
     Dates: start: 20030601
  2. NORVIR [Concomitant]
  3. EPIVIR [Concomitant]
  4. AGENERASE [Concomitant]
  5. VIREAD [Concomitant]
  6. FUZEON [Concomitant]

REACTIONS (2)
  - INTERSTITIAL LUNG DISEASE [None]
  - LUNG DISORDER [None]
